FAERS Safety Report 6787885-9 (Version None)
Quarter: 2010Q2

REPORT INFORMATION
  Report Type: 
  Country: None (occurrence: None)
  Receive Date: 20100623
  Receipt Date: 20071012
  Transmission Date: 20101027
  Serious: No
  Sender: FDA-Public Use
  Company Number: US-PFIZER INC-2007082984

PATIENT
  Age: 35 Year
  Sex: Female

DRUGS (2)
  1. PROVERA [Suspect]
     Route: 048
     Dates: start: 20070701, end: 20070801
  2. SEROPHENE [Suspect]
     Indication: ANOVULATORY CYCLE
     Dates: start: 20070801, end: 20070801

REACTIONS (3)
  - ABDOMINAL PAIN [None]
  - MENORRHAGIA [None]
  - OVARIAN CYST [None]
